FAERS Safety Report 19494524 (Version 1)
Quarter: 2021Q3

REPORT INFORMATION
  Report Type: Spontaneous
  Country: PL (occurrence: PL)
  Receive Date: 20210705
  Receipt Date: 20210705
  Transmission Date: 20211014
  Serious: Yes (Other)
  Sender: FDA-Public Use
  Company Number: NVSC2021PL144761

PATIENT
  Age: 68 Year
  Sex: Male

DRUGS (1)
  1. REVOLADE [Suspect]
     Active Substance: ELTROMBOPAG OLAMINE
     Indication: IMMUNE THROMBOCYTOPENIA
     Dosage: 50 MG, QD
     Route: 065
     Dates: start: 20201012

REACTIONS (5)
  - Platelet count abnormal [Unknown]
  - Epistaxis [Unknown]
  - Dermatitis atopic [Unknown]
  - Gingival bleeding [Unknown]
  - Incorrect dose administered [Unknown]
